FAERS Safety Report 9119487 (Version 1)
Quarter: 2013Q1

REPORT INFORMATION
  Report Type: Spontaneous
  Country: US (occurrence: US)
  Receive Date: 20130207
  Receipt Date: 20130207
  Transmission Date: 20140127
  Serious: No
  Sender: FDA-Public Use
  Company Number: US-PFIZER INC-2013047464

PATIENT
  Age: 66 Year
  Sex: Female
  Weight: 76.19 kg

DRUGS (12)
  1. AZITHROMYCIN [Suspect]
     Indication: SINUSITIS
     Dosage: 250 MG, 1X/DAY
     Route: 048
     Dates: start: 20130131, end: 20130201
  2. SIMVASTATIN [Concomitant]
     Indication: BLOOD CHOLESTEROL INCREASED
     Dosage: 40 MG, UNK
  3. HYDROCHLOROTHIAZIDE [Concomitant]
     Dosage: 12.5 MG, UNK
  4. SERTRALINE [Concomitant]
     Indication: ATTENTION DEFICIT/HYPERACTIVITY DISORDER
     Dosage: 50 MG, UNK
  5. NASACORT [Concomitant]
     Indication: ASTHMA
     Dosage: 55 UG, UNK
  6. SINGULAIR [Concomitant]
     Indication: ASTHMA
     Dosage: 10 MG, UNK
  7. ZYRTEC [Concomitant]
     Indication: HYPERSENSITIVITY
     Dosage: 10 MG, UNK
  8. ADVAIR DISKUS [Concomitant]
     Indication: ASTHMA
     Dosage: 100/50 MG, UNK
  9. DEXILANT [Concomitant]
     Dosage: 30 MG, UNK
  10. BABY ASPIRIN [Concomitant]
     Dosage: UNK
  11. METOPROLOL [Concomitant]
     Indication: TACHYCARDIA
     Dosage: 25 MG, UNK
  12. LISINOPRIL [Concomitant]
     Indication: HYPERTENSION
     Dosage: 2.5 MG, UNK

REACTIONS (7)
  - Hypersensitivity [Unknown]
  - Rash [Recovered/Resolved]
  - Erythema [Not Recovered/Not Resolved]
  - Skin discomfort [Not Recovered/Not Resolved]
  - Dry skin [Not Recovered/Not Resolved]
  - Pruritus [Not Recovered/Not Resolved]
  - Skin discomfort [Not Recovered/Not Resolved]
